FAERS Safety Report 8348724-8 (Version None)
Quarter: 2012Q2

REPORT INFORMATION
  Report Type: 
  Country: None (occurrence: None)
  Receive Date: 20120510
  Receipt Date: 20120508
  Transmission Date: 20120825
  Serious: No
  Sender: FDA-Public Use
  Company Number: US-PFIZER INC-2012112375

PATIENT
  Sex: Female
  Weight: 60 kg

DRUGS (2)
  1. XANAX [Suspect]
     Indication: ANXIETY
     Dosage: 2 MG, 3X/DAY
     Route: 048
  2. EFFEXOR [Concomitant]
     Indication: DEPRESSION
     Dosage: 225 MG, 75MG IN MORNING AND 150MG AT NIGHT

REACTIONS (2)
  - INSOMNIA [None]
  - FATIGUE [None]
